FAERS Safety Report 8084265 (Version 6)
Quarter: 2014Q1

REPORT INFORMATION
  Report Type: Spontaneous
  Country: US (occurrence: US)
  Receive Date: 20110810
  Receipt Date: 20140206
  Transmission Date: 20141002
  Serious: Yes (Hospitalization)
  Sender: FDA-Public Use
  Company Number: US-GLAXOSMITHKLINE-A0843840A

PATIENT
  Age: 54 Year
  Sex: Male
  Weight: 112.3 kg

DRUGS (3)
  1. AVANDAMET [Suspect]
     Indication: TYPE 2 DIABETES MELLITUS
     Dosage: 4MG TWICE PER DAY
     Route: 065
     Dates: start: 20050325, end: 20071031
  2. AVANDIA [Suspect]
     Indication: TYPE 2 DIABETES MELLITUS
     Dosage: 8MG PER DAY
     Route: 065
     Dates: start: 20060501, end: 200611
  3. CELEBREX [Concomitant]

REACTIONS (5)
  - Myocardial infarction [Unknown]
  - Angina unstable [Unknown]
  - Transient ischaemic attack [Unknown]
  - Renal failure chronic [Unknown]
  - Chest pain [Unknown]
